FAERS Safety Report 10966559 (Version 1)
Quarter: 2015Q1

REPORT INFORMATION
  Report Type: Spontaneous
  Country: US (occurrence: None)
  Receive Date: 20150226
  Receipt Date: 20150226
  Transmission Date: 20150721
  Serious: No
  Sender: FDA-Public Use
  Company Number: TPA2009A02341

PATIENT
  Age: 65 Year
  Sex: Male

DRUGS (2)
  1. ULORIC [Suspect]
     Active Substance: FEBUXOSTAT
     Indication: GOUT
     Route: 048
     Dates: start: 200908, end: 200908
  2. CHOLESTEROL - AND TRIGLYCERIDE REDUCERS) [Suspect]
     Active Substance: UNSPECIFIED INGREDIENT
     Indication: PRODUCT USED FOR UNKNOWN INDICATION

REACTIONS (4)
  - Myalgia [None]
  - Pain [None]
  - Muscle swelling [None]
  - Joint swelling [None]

NARRATIVE: CASE EVENT DATE: 200908
